FAERS Safety Report 8224935 (Version 3)
Quarter: 2014Q1

REPORT INFORMATION
  Report Type: Spontaneous
  Country: US (occurrence: US)
  Receive Date: 20111103
  Receipt Date: 20140123
  Transmission Date: 20141002
  Serious: Yes (Life-Threatening, Hospitalization, Other)
  Sender: FDA-Public Use
  Company Number: US-BAYER-2011-106008

PATIENT
  Age: 22 Year
  Sex: Female
  Weight: 68.03 kg

DRUGS (5)
  1. YASMIN [Suspect]
     Indication: CONTRACEPTION
     Dosage: UNK
     Dates: start: 2002, end: 200501
  2. OXYCONTIN [Concomitant]
     Dosage: 10 MG, UNK
     Route: 048
     Dates: start: 20030731
  3. HYDROCODONE W/APAP [Concomitant]
     Dosage: 10/500
     Route: 048
     Dates: start: 20030731
  4. HYDROCODONE W/APAP [Concomitant]
     Dosage: 10/500
     Route: 048
     Dates: start: 20030803
  5. HYDROCODONE W/APAP [Concomitant]
     Dosage: 10/500
     Route: 048
     Dates: start: 20030830

REACTIONS (8)
  - Gallbladder non-functioning [None]
  - Cholecystitis chronic [None]
  - Injury [None]
  - Pain [None]
  - General physical health deterioration [None]
  - Anxiety [None]
  - Anhedonia [None]
  - Organ failure [None]
